FAERS Safety Report 9442701 (Version 2)
Quarter: 2013Q3

REPORT INFORMATION
  Report Type: Spontaneous
  Country: US (occurrence: US)
  Receive Date: 20130806
  Receipt Date: 20130819
  Transmission Date: 20140515
  Serious: Yes (Death, Congenital Anomaly, Other)
  Sender: FDA-Public Use
  Company Number: US-PFIZER INC-2013225272

PATIENT
  Sex: Male

DRUGS (5)
  1. ZOLOFT [Suspect]
     Dosage: UNK
     Route: 064
     Dates: start: 1998, end: 201107
  2. SERTRALINE HCL [Suspect]
     Indication: DEPRESSION
     Dosage: UNK
     Route: 064
     Dates: start: 1998, end: 201107
  3. PRENATAL VITAMINS [Concomitant]
     Dosage: UNK
     Route: 064
  4. ALBUTEROL [Concomitant]
     Dosage: UNK
     Route: 064
  5. PREDNISONE [Concomitant]
     Dosage: UNK
     Route: 064

REACTIONS (9)
  - Foetal exposure during pregnancy [Fatal]
  - Pulmonary haemorrhage [Fatal]
  - Intraventricular haemorrhage [Fatal]
  - Neonatal respiratory distress syndrome [Unknown]
  - Patent ductus arteriosus [Unknown]
  - Ventricular tachycardia [Unknown]
  - Atrial septal defect [Unknown]
  - Premature baby [Unknown]
  - Hyperkalaemia [Unknown]
